FAERS Safety Report 6318400-1 (Version None)
Quarter: 2009Q3

REPORT INFORMATION
  Report Type: 
  Country: None (occurrence: None)
  Receive Date: 20090821
  Receipt Date: 20090810
  Transmission Date: 20100115
  Serious: Yes (Hospitalization)
  Sender: FDA-Public Use
  Company Number: FR-ELI_LILLY_AND_COMPANY-FR200908002409

PATIENT
  Sex: Male

DRUGS (7)
  1. PEMETREXED [Suspect]
     Indication: NON-SMALL CELL LUNG CANCER
     Dosage: UNK, UNKNOWN
     Route: 042
     Dates: start: 20090529
  2. GEMCITABINE HCL [Suspect]
     Indication: NON-SMALL CELL LUNG CANCER
     Dosage: 1250 MG/M2, UNKNOWN
     Route: 042
     Dates: start: 20081202, end: 20090203
  3. CISPLATIN [Suspect]
     Indication: NON-SMALL CELL LUNG CANCER
     Dosage: 80 MG/M2, UNKNOWN
     Route: 042
     Dates: start: 20081202, end: 20090203
  4. TARCEVA [Suspect]
     Indication: NON-SMALL CELL LUNG CANCER
     Dosage: 150 MG, UNKNOWN
     Route: 048
     Dates: start: 20090224, end: 20090520
  5. FOLIC ACID [Concomitant]
     Indication: PROPHYLAXIS
  6. VITAMIN B-12 [Concomitant]
     Indication: PROPHYLAXIS
  7. DEXAMETHASONE [Concomitant]
     Indication: PROPHYLAXIS

REACTIONS (1)
  - DYSPNOEA [None]
